FAERS Safety Report 21360333 (Version 3)
Quarter: 2022Q4

REPORT INFORMATION
  Report Type: Report from Study
  Country: FR (occurrence: FR)
  Receive Date: 20220921
  Receipt Date: 20221014
  Transmission Date: 20230112
  Serious: Yes (Hospitalization)
  Sender: FDA-Public Use
  Company Number: FR-GLAXOSMITHKLINE-FR2022GSK123912

PATIENT

DRUGS (7)
  1. INUPADENANT [Suspect]
     Active Substance: INUPADENANT
     Indication: Adrenocortical carcinoma
     Dosage: 20 MG, BID
     Route: 048
     Dates: start: 20220728, end: 20220817
  2. INUPADENANT [Suspect]
     Active Substance: INUPADENANT
     Dosage: 20 MG, BID
     Route: 048
     Dates: start: 20220901
  3. DOSTARLIMAB [Suspect]
     Active Substance: DOSTARLIMAB
     Indication: Adrenocortical carcinoma
     Dosage: 500 MG, Q3W
     Route: 042
     Dates: start: 20220728, end: 20220728
  4. DOSTARLIMAB [Suspect]
     Active Substance: DOSTARLIMAB
     Dosage: 500 MG, Q3W
     Route: 042
     Dates: start: 20220929, end: 20220929
  5. PERINDOPRIL [Concomitant]
     Active Substance: PERINDOPRIL
     Indication: Product used for unknown indication
     Dosage: UNK
     Dates: start: 2017
  6. AMLODIPINE [Concomitant]
     Active Substance: AMLODIPINE BESYLATE
     Indication: Product used for unknown indication
     Dosage: UNK
     Dates: start: 2017
  7. SPIRONOLACTONE [Concomitant]
     Active Substance: SPIRONOLACTONE
     Indication: Product used for unknown indication
     Dosage: UNK
     Dates: start: 2017

REACTIONS (2)
  - Hypoxia [Recovered/Resolved]
  - Pneumonia [Recovered/Resolved]

NARRATIVE: CASE EVENT DATE: 20220818
